FAERS Safety Report 15292558 (Version 1)
Quarter: 2018Q3

REPORT INFORMATION
  Report Type: Spontaneous
  Country: GB (occurrence: GB)
  Receive Date: 20180818
  Receipt Date: 20180818
  Transmission Date: 20181010
  Serious: Yes (Disabling, Other)
  Sender: FDA-Public Use
  Company Number: GB-TEVA-2018-GB-942434

PATIENT
  Age: 58 Year
  Sex: Male
  Weight: 99 kg

DRUGS (16)
  1. SYMBICORT [Concomitant]
     Active Substance: BUDESONIDE\FORMOTEROL FUMARATE DIHYDRATE
     Dosage: 2 DOSAGE FORMS DAILY; PUFF (200/6)
     Route: 065
     Dates: start: 20180703
  2. VENTOLIN [Concomitant]
     Active Substance: ALBUTEROL SULFATE
     Dosage: 1 TO 2 PUFFS UP TO FOUR TIMES DAILY.
     Route: 065
     Dates: start: 20180703
  3. RAMIPRIL. [Concomitant]
     Active Substance: RAMIPRIL
     Dosage: 10 MILLIGRAM DAILY;
     Route: 065
     Dates: start: 20180509, end: 20180625
  4. WARFARIN [Concomitant]
     Active Substance: WARFARIN
     Dosage: TO BE TAKEN AS PER INR RESULT
     Route: 065
     Dates: start: 20180412, end: 20180625
  5. DIAZEPAM. [Concomitant]
     Active Substance: DIAZEPAM
     Dosage: 2 MILLIGRAM DAILY; NIGHT
     Route: 048
     Dates: start: 20180625
  6. WARFARIN [Concomitant]
     Active Substance: WARFARIN
     Dosage: TO BE TAKEN AS PER INR RESULT
     Route: 065
     Dates: start: 20180412, end: 20180625
  7. ATORVASTATIN [Concomitant]
     Active Substance: ATORVASTATIN
     Dosage: 40 MILLIGRAM DAILY;
     Route: 065
     Dates: start: 20180703
  8. DOXYCYCLINE. [Concomitant]
     Active Substance: DOXYCYCLINE
     Dosage: 200 MILLIGRAM DAILY; ON THE FIRST DAY, THEN ONE DAILY (MORNING)
     Route: 065
     Dates: start: 20180606
  9. CITALOPRAM [Concomitant]
     Active Substance: CITALOPRAM HYDROBROMIDE
     Dosage: 20 MILLIGRAM DAILY;
     Route: 065
     Dates: start: 20180703
  10. GABAPENTIN. [Concomitant]
     Active Substance: GABAPENTIN
     Dosage: 300 MILLIGRAM DAILY;
     Route: 048
     Dates: start: 20180703
  11. TILDIEM [Concomitant]
     Active Substance: DILTIAZEM HYDROCHLORIDE
     Dosage: 120 MILLIGRAM DAILY;
     Route: 065
     Dates: start: 20180703
  12. ZAPAIN [Concomitant]
     Active Substance: ACETAMINOPHEN\CODEINE PHOSPHATE
     Dosage: 1?2 UP TO FOUR TIMES DAILY (30/500MG)
     Dates: start: 20180625
  13. TRAMADOL. [Suspect]
     Active Substance: TRAMADOL
     Indication: BACK PAIN
     Route: 048
  14. INDAPAMIDE. [Concomitant]
     Active Substance: INDAPAMIDE
     Dosage: 2.5 MILLIGRAM DAILY;
     Route: 065
     Dates: start: 20180703
  15. PREDNISOLONE. [Concomitant]
     Active Substance: PREDNISOLONE
     Dosage: 30 MILLIGRAM DAILY; MORNING
     Route: 065
     Dates: start: 20180606
  16. WARFARIN [Concomitant]
     Active Substance: WARFARIN
     Dosage: TO BE TAKEN AS PER INR RESULT
     Route: 065
     Dates: start: 20180412, end: 20180625

REACTIONS (6)
  - Asthenia [Unknown]
  - Confusional state [Unknown]
  - Malaise [Unknown]
  - Dizziness [Recovered/Resolved]
  - Disorientation [Unknown]
  - Hyperhidrosis [Unknown]

NARRATIVE: CASE EVENT DATE: 20180323
